FAERS Safety Report 11911483 (Version 1)
Quarter: 2016Q1

REPORT INFORMATION
  Report Type: Spontaneous
  Country: US (occurrence: US)
  Receive Date: 20160112
  Receipt Date: 20160112
  Transmission Date: 20160526
  Serious: No
  Sender: FDA-Public Use
  Company Number: US-BAYER-2016-005884

PATIENT
  Age: 66 Year
  Sex: Female
  Weight: 72.56 kg

DRUGS (4)
  1. CLARITIN-D 24 HOUR [Suspect]
     Active Substance: LORATADINE\PSEUDOEPHEDRINE SULFATE
     Indication: PARANASAL SINUS HYPERSECRETION
  2. MUCINEX [Concomitant]
     Active Substance: GUAIFENESIN
  3. AMOXICILLIN. [Concomitant]
     Active Substance: AMOXICILLIN
  4. CLARITIN-D 24 HOUR [Suspect]
     Active Substance: LORATADINE\PSEUDOEPHEDRINE SULFATE
     Indication: SINUSITIS
     Dosage: 1 DF, ONCE
     Route: 048
     Dates: start: 20160108, end: 20160108

REACTIONS (2)
  - Insomnia [Recovered/Resolved]
  - Off label use [None]

NARRATIVE: CASE EVENT DATE: 20160108
